FAERS Safety Report 5734825-7 (Version None)
Quarter: 2008Q2

REPORT INFORMATION
  Report Type: 
  Country: None (occurrence: None)
  Receive Date: 20080512
  Receipt Date: 20080430
  Transmission Date: 20081010
  Serious: Yes (Hospitalization)
  Sender: FDA-Public Use
  Company Number: DE-ROCHE-562275

PATIENT
  Age: 68 Year
  Sex: Female
  Weight: 105 kg

DRUGS (3)
  1. BONIVA [Suspect]
     Indication: OSTEOPOROSIS
     Dosage: STRENGTH REPORTED AS: 3MG/3ML. FORM: SYRINGE.
     Route: 042
     Dates: start: 20080121
  2. MARCUMAR [Concomitant]
  3. METFORMIN HCL [Concomitant]

REACTIONS (4)
  - ALANINE AMINOTRANSFERASE INCREASED [None]
  - ASPARTATE AMINOTRANSFERASE INCREASED [None]
  - BLOOD GLUCOSE ABNORMAL [None]
  - GAMMA-GLUTAMYLTRANSFERASE INCREASED [None]
